FAERS Safety Report 23972541 (Version 1)
Quarter: 2024Q2

REPORT INFORMATION
  Report Type: Spontaneous
  Country: US (occurrence: US)
  Receive Date: 20240613
  Receipt Date: 20240613
  Transmission Date: 20240716
  Serious: No
  Sender: FDA-Public Use
  Company Number: US-SA-SAC20240611000150

PATIENT
  Age: 48 Year
  Sex: Female
  Weight: 133.8 kg

DRUGS (1)
  1. DUPIXENT [Suspect]
     Active Substance: DUPILUMAB
     Indication: Nasal polyps
     Dosage: 300 MG, QOW
     Route: 058
     Dates: start: 202002

REACTIONS (3)
  - COVID-19 [Unknown]
  - Fatigue [Unknown]
  - Arthralgia [Unknown]
